FAERS Safety Report 9251982 (Version 1)
Quarter: 2013Q1

REPORT INFORMATION
  Report Type: Spontaneous
  Country: US (occurrence: None)
  Receive Date: 20130305
  Receipt Date: 20130305
  Transmission Date: 20140127
  Serious: Yes (Other)
  Sender: FDA-Public Use
  Company Number: 163-21880-12091120

PATIENT
  Age: 74 Year
  Sex: Female

DRUGS (5)
  1. REVLIMID [Suspect]
     Indication: FOLLICLE CENTRE LYMPHOMA, FOLLICULAR GRADE I, II, III
     Route: 048
     Dates: start: 20100121
  2. ASPIRIN [Concomitant]
  3. PREVACID [Concomitant]
  4. ALEVE [Concomitant]
  5. VITAMINS [Concomitant]

REACTIONS (1)
  - Neutrophil count decreased [None]
